FAERS Safety Report 4567915-5 (Version None)
Quarter: 2005Q1

REPORT INFORMATION
  Report Type: 
  Country: None (occurrence: None)
  Receive Date: 20050202
  Receipt Date: 20050126
  Transmission Date: 20050727
  Serious: Yes (Hospitalization)
  Sender: FDA-Public Use
  Company Number: US-JNJFOC-20050107093

PATIENT
  Sex: Female
  Weight: 154.22 kg

DRUGS (4)
  1. DURAGESIC [Suspect]
     Route: 062
  2. OXYCODONE HCL [Concomitant]
     Indication: PAIN
     Dosage: 10/325 MG Q 4-6 AS NEEDED
     Route: 049
  3. COUMADIN [Concomitant]
     Route: 049
  4. COUMADIN [Concomitant]
     Indication: ANTICOAGULANT THERAPY
     Route: 049

REACTIONS (1)
  - ARTHROPATHY [None]
